FAERS Safety Report 23571841 (Version 1)
Quarter: 2024Q1

REPORT INFORMATION
  Report Type: Spontaneous
  Country: PT (occurrence: PT)
  Receive Date: 20240227
  Receipt Date: 20240227
  Transmission Date: 20240410
  Serious: Yes (Life-Threatening)
  Sender: FDA-Public Use
  Company Number: None

PATIENT
  Age: 37 Year
  Sex: Male
  Weight: 75 kg

DRUGS (5)
  1. ALPRAZOLAM [Suspect]
     Active Substance: ALPRAZOLAM
     Indication: Product used for unknown indication
     Dosage: UNK
     Route: 048
  2. OLANZAPINE [Suspect]
     Active Substance: OLANZAPINE
     Indication: Product used for unknown indication
     Dosage: 210 MILLIGRAM (INGESTION OF 14 TABLETS OF OLANZAPINE 15 MG IN A SINGLE DOSE)
     Route: 048
  3. FLUMAZENIL [Suspect]
     Active Substance: FLUMAZENIL
     Indication: Antipsychotic drug level above therapeutic
     Dosage: 0.5 MILLIGRAM (0.5 MG INTRAVENOUSLY IN A SINGLE DOSE)
     Route: 042
     Dates: start: 20231228, end: 20231228
  4. FLUMAZENIL [Suspect]
     Active Substance: FLUMAZENIL
     Indication: Loss of consciousness
  5. FLUMAZENIL [Suspect]
     Active Substance: FLUMAZENIL
     Indication: Toxicity to various agents

REACTIONS (1)
  - Bradycardia [Recovered/Resolved]

NARRATIVE: CASE EVENT DATE: 20231228
